FAERS Safety Report 11851470 (Version 1)
Quarter: 2015Q4

REPORT INFORMATION
  Report Type: Spontaneous
  Country: US (occurrence: US)
  Receive Date: 20151218
  Receipt Date: 20151218
  Transmission Date: 20160305
  Serious: No
  Sender: FDA-Public Use
  Company Number: US-JNJFOC-20151119769

PATIENT
  Sex: Male
  Weight: 70.31 kg

DRUGS (5)
  1. MENS ROGAINE EXTRA STRENGTH [Suspect]
     Active Substance: MINOXIDIL
     Indication: ALOPECIA
     Dosage: 2 TO 5 LITTLE SQIRTS
     Route: 061
     Dates: start: 20051116
  2. ATORVASTATIN [Concomitant]
     Active Substance: ATORVASTATIN
     Indication: BLOOD CHOLESTEROL
     Dosage: 1/2 DAY 10+ YEARS
     Route: 065
     Dates: start: 20051116
  3. HERBALS NOS W/MINERALS NOS/VITAMINS NOS [Concomitant]
     Indication: HAIR GROWTH ABNORMAL
     Route: 065
     Dates: start: 20141116
  4. METOPROLOL [Concomitant]
     Active Substance: METOPROLOL
     Indication: HYPERTENSION
     Route: 065
     Dates: start: 20051116
  5. MENS ROGAINE EXTRA STRENGTH [Suspect]
     Active Substance: MINOXIDIL
     Route: 061

REACTIONS (3)
  - Rash [Recovered/Resolved]
  - Skin irritation [Recovered/Resolved]
  - Skin tightness [Recovered/Resolved]

NARRATIVE: CASE EVENT DATE: 20051116
